FAERS Safety Report 4945178-6 (Version None)
Quarter: 2006Q1

REPORT INFORMATION
  Report Type: 
  Country: None (occurrence: None)
  Receive Date: 20060117
  Receipt Date: 20051104
  Transmission Date: 20060701
  Serious: Yes (Death)
  Sender: FDA-Public Use
  Company Number: A03200503579

PATIENT
  Age: 95 Year
  Sex: Male

DRUGS (11)
  1. PLAVIX [Suspect]
     Indication: STENT PLACEMENT
     Dosage: 75 MG QD - ORAL
     Route: 048
     Dates: start: 20040101
  2. ACETYLSALICYLIC ACID SRT [Concomitant]
  3. TOLTERODINE TARTRATE [Concomitant]
  4. ISOSORBIDE MONONITRATE [Concomitant]
  5. FLUVASTATIN SODIUM [Concomitant]
  6. METOPROLOL TARTRATE [Concomitant]
  7. GLYCERYL TRINITRATE [Concomitant]
  8. AMLODIPINE BESYLATE [Concomitant]
  9. METOCLOPRAMIDE [Concomitant]
  10. EPOGEN [Concomitant]
  11. FERROUS SULFATE TAB [Concomitant]

REACTIONS (1)
  - TRAUMATIC INTRACRANIAL HAEMORRHAGE [None]
